FAERS Safety Report 8131746-X (Version None)
Quarter: 2012Q1

REPORT INFORMATION
  Report Type: 
  Country: None (occurrence: None)
  Receive Date: 20120213
  Receipt Date: 20120131
  Transmission Date: 20120608
  Serious: Yes (Death)
  Sender: FDA-Public Use
  Company Number: NO-UCBSA-050706

PATIENT
  Age: 40 Year
  Sex: Male

DRUGS (2)
  1. LAMICTAL [Suspect]
     Indication: EPILEPSY
  2. VIMPAT [Suspect]
     Indication: EPILEPSY

REACTIONS (1)
  - SUDDEN DEATH [None]
